FAERS Safety Report 8564548-0 (Version None)
Quarter: 2012Q3

REPORT INFORMATION
  Report Type: 
  Country: None (occurrence: None)
  Receive Date: 20120803
  Receipt Date: 20120727
  Transmission Date: 20120928
  Serious: Yes (Hospitalization)
  Sender: FDA-Public Use
  Company Number: JP-009507513-1207JPN012594

PATIENT

DRUGS (9)
  1. PEG-INTRON [Suspect]
     Indication: HEPATITIS C
     Dosage: 1.5MCG/KG/WEEK
     Route: 058
     Dates: start: 20120605
  2. POSTERISAN [Concomitant]
     Indication: ANORECTAL DISORDER
     Dosage: Q.S.
     Route: 061
     Dates: start: 20120618
  3. REBETOL [Suspect]
     Indication: HEPATITIS C
     Route: 048
     Dates: start: 20120605, end: 20120626
  4. REBETOL [Suspect]
     Route: 048
     Dates: start: 20120703
  5. LOBU [Concomitant]
     Indication: PROPHYLAXIS
     Dosage: AS NEEDED
     Route: 048
     Dates: start: 20120605
  6. REBETOL [Suspect]
     Route: 048
     Dates: start: 20120627, end: 20120702
  7. TELAVIC [Suspect]
     Indication: HEPATITIS C
     Route: 048
     Dates: start: 20120605
  8. FERROUS CITRATE [Concomitant]
     Indication: PROPHYLAXIS
     Route: 048
     Dates: start: 20120610
  9. CLARITIN [Concomitant]
     Indication: PROPHYLAXIS
     Route: 048
     Dates: start: 20120610

REACTIONS (1)
  - CEREBRAL HAEMORRHAGE [None]
